FAERS Safety Report 9636143 (Version 1)
Quarter: 2013Q4

REPORT INFORMATION
  Report Type: Report from Study
  Country: GB (occurrence: GB)
  Receive Date: 20131021
  Receipt Date: 20131021
  Transmission Date: 20140711
  Serious: Yes (Other)
  Sender: FDA-Public Use
  Company Number: GB-AMGEN-GBRCT2013072812

PATIENT
  Age: 46 Year
  Sex: Male

DRUGS (2)
  1. ETANERCEPT [Suspect]
     Indication: RHEUMATOID ARTHRITIS
     Dosage: 25 MG, UNK
     Route: 065
     Dates: start: 20050519, end: 20060828
  2. METHOTREXATE [Concomitant]
     Dosage: UNK
     Dates: start: 20071120

REACTIONS (1)
  - Prostate cancer [Unknown]
